FAERS Safety Report 6410158-0 (Version None)
Quarter: 2009Q4

REPORT INFORMATION
  Report Type: 
  Country: None (occurrence: None)
  Receive Date: 20091022
  Receipt Date: 20091015
  Transmission Date: 20100525
  Serious: Yes (Other)
  Sender: FDA-Public Use
  Company Number: US-ROCHE-662570

PATIENT
  Sex: Female

DRUGS (2)
  1. BONIVA [Suspect]
     Indication: DRUG USE FOR UNKNOWN INDICATION
     Route: 048
     Dates: start: 20090601
  2. CORTISONE [Concomitant]

REACTIONS (5)
  - CATARACT OPERATION [None]
  - DIZZINESS [None]
  - RASH [None]
  - TOOTH DISORDER [None]
  - VISION BLURRED [None]
